FAERS Safety Report 5330497-4 (Version None)
Quarter: 2007Q2

REPORT INFORMATION
  Report Type: 
  Country: None (occurrence: None)
  Receive Date: 20070517
  Receipt Date: 20070504
  Transmission Date: 20071010
  Serious: Yes (Hospitalization)
  Sender: FDA-Public Use
  Company Number: 6033007

PATIENT
  Age: 46 Year
  Sex: Male

DRUGS (8)
  1. PROGOUT (300 MG, TABLET) (ALLOPURINOL) [Suspect]
     Indication: GOUT
     Dosage: 300,0000 MG (300 MG, 1 IN 1 D)
     Route: 048
     Dates: end: 20060323
  2. DIABEX (1 GRAM, TABLET) (METFORMIN) [Suspect]
     Indication: METABOLIC DISORDER
     Dosage: 1,00 GM (1 GM, 1 IN 1 D) ORAL
     Route: 048
     Dates: start: 20060215, end: 20060323
  3. AMIZIDE (1 GRAM, TABLET)(HYDROCHLOROZIDE) [Suspect]
     Indication: OEDEMA
     Dosage: 1,00 GM (1 GM, 1 IN 1 D) ORAL
     Route: 048
     Dates: start: 20050715, end: 20060323
  4. ATACAND (TABLET) (HYDROCLOROTHIAZIDE, CANDESARTAN CILEXETIL) [Suspect]
     Indication: ESSENTIAL HYPERTENSION
     Dosage: ORAL
     Route: 048
  5. LASIX [Suspect]
     Indication: OEDEMA
     Dosage: 40,000 MG(40 MG, 1 IN 1 D)
     Route: 048
     Dates: start: 20051111, end: 20060323
  6. CELEBREX [Suspect]
     Indication: OSTEOARTHRITIS
     Dosage: 200,0000 MG (200 MG, 1 IN 1 D)
     Route: 048
     Dates: end: 20060323
  7. LIPITOR [Concomitant]
  8. NEXIUM [Concomitant]

REACTIONS (8)
  - COORDINATION ABNORMAL [None]
  - DIARRHOEA [None]
  - HYPOAESTHESIA [None]
  - PARAESTHESIA [None]
  - RENAL IMPAIRMENT [None]
  - SOMNOLENCE [None]
  - TREMOR [None]
  - VOMITING [None]
